FAERS Safety Report 7590260-0 (Version None)
Quarter: 2011Q3

REPORT INFORMATION
  Report Type: 
  Country: None (occurrence: None)
  Receive Date: 20110705
  Receipt Date: 20110629
  Transmission Date: 20111222
  Serious: Yes (Death, Hospitalization, Other)
  Sender: FDA-Public Use
  Company Number: MX-JNJFOC-20110404610

PATIENT
  Age: 71 Year
  Sex: Female
  Weight: 61 kg

DRUGS (12)
  1. OMEPRAZOLE [Concomitant]
     Indication: PROPHYLAXIS
     Route: 048
     Dates: start: 20090101, end: 20110427
  2. FOLIC ACID [Concomitant]
     Indication: PROPHYLAXIS
     Route: 048
     Dates: start: 19930101, end: 20110427
  3. CALCITRIOL [Concomitant]
     Indication: OSTEOPOROSIS PROPHYLAXIS
     Route: 048
     Dates: start: 20000101, end: 20110427
  4. METHOTREXATE [Concomitant]
     Indication: RHEUMATOID ARTHRITIS
     Dates: start: 19930101, end: 20110404
  5. DEFLAZACORT [Concomitant]
     Indication: RHEUMATOID ARTHRITIS
     Route: 048
     Dates: start: 20090101, end: 20110404
  6. ACETAMINOPHEN AND TRAMADOL HCL [Concomitant]
     Indication: RHEUMATOID ARTHRITIS
     Dates: start: 20090101, end: 20110427
  7. METOPROLOL TARTRATE [Concomitant]
     Indication: HYPERTENSION
     Route: 048
     Dates: start: 19930101, end: 20110427
  8. GOLIMUMAB [Suspect]
     Indication: RHEUMATOID ARTHRITIS
     Route: 058
     Dates: start: 20100719
  9. GOLIMUMAB [Suspect]
     Route: 058
     Dates: start: 20110214
  10. DICLOFENAC SODIUM [Concomitant]
     Route: 048
     Dates: start: 19930101, end: 20110404
  11. METFORMIN HCL [Concomitant]
     Indication: DIABETES MELLITUS
     Route: 048
     Dates: start: 19930101, end: 20110404
  12. DICLOFENAC SODIUM [Concomitant]
     Indication: RHEUMATOID ARTHRITIS
     Route: 048
     Dates: start: 20110418, end: 20110427

REACTIONS (3)
  - ANAEMIA [None]
  - GASTRIC HAEMORRHAGE [None]
  - ENCEPHALOPATHY [None]
